FAERS Safety Report 22314923 (Version 1)
Quarter: 2023Q2

REPORT INFORMATION
  Report Type: Spontaneous
  Country: US (occurrence: None)
  Receive Date: 20230511
  Receipt Date: 20230511
  Transmission Date: 20230722
  Serious: Yes (Hospitalization)
  Sender: FDA-Public Use
  Company Number: None

PATIENT
  Age: 62 Year
  Sex: Male

DRUGS (2)
  1. DAPAGLIFLOZIN [Suspect]
     Active Substance: DAPAGLIFLOZIN
     Indication: Type 2 diabetes mellitus
     Dosage: FREQUENCY : DAILY;?
     Route: 048
  2. DAPAGLIFLOZIN [Suspect]
     Active Substance: DAPAGLIFLOZIN
     Indication: Cardiac failure congestive

REACTIONS (1)
  - Fournier^s gangrene [None]

NARRATIVE: CASE EVENT DATE: 20221120
